FAERS Safety Report 25803896 (Version 1)
Quarter: 2025Q3

REPORT INFORMATION
  Report Type: Spontaneous
  Country: US (occurrence: US)
  Receive Date: 20250915
  Receipt Date: 20250915
  Transmission Date: 20251021
  Serious: No
  Sender: PFIZER
  Company Number: US-PFIZER INC-PV202500111056

PATIENT
  Age: 26 Year
  Sex: Female

DRUGS (11)
  1. XELJANZ [Suspect]
     Active Substance: TOFACITINIB CITRATE
  2. ACTEMRA [Concomitant]
     Active Substance: TOCILIZUMAB
  3. ALBUTEROL SULFATE [Concomitant]
     Active Substance: ALBUTEROL SULFATE
  4. BUSPIRONE [Concomitant]
     Active Substance: BUSPIRONE HYDROCHLORIDE
  5. VITAMIN D3 [Concomitant]
     Active Substance: CHOLECALCIFEROL
  6. PRISTIQ EXTENDED-RELEASE [Concomitant]
     Active Substance: DESVENLAFAXINE SUCCINATE
  7. LUNESTA [Concomitant]
     Active Substance: ESZOPICLONE
  8. NEURONTIN [Concomitant]
     Active Substance: GABAPENTIN
  9. FISH OIL [Concomitant]
     Active Substance: FISH OIL
  10. ATARAX [Concomitant]
     Active Substance: HYDROXYZINE HYDROCHLORIDE
  11. RITUXAN [Concomitant]
     Active Substance: RITUXIMAB

REACTIONS (1)
  - Drug ineffective [Unknown]
